FAERS Safety Report 7288557-7 (Version None)
Quarter: 2011Q1

REPORT INFORMATION
  Report Type: 
  Country: None (occurrence: None)
  Receive Date: 20110201
  Receipt Date: 20110117
  Transmission Date: 20110831
  Serious: Yes (Hospitalization)
  Sender: FDA-Public Use
  Company Number: 1000017280

PATIENT
  Age: 85 Year
  Sex: Male

DRUGS (2)
  1. CITALOPRAM (CITALOPRAM HYDROBROMIDE) (TABLETS) [Suspect]
     Dates: end: 20100915
  2. CITALOPRAM (CITALOPRAM HYDROBROMIDE) (TABLETS) [Suspect]
     Dosage: 20 MG (20 MG, 1 IN 1 D)

REACTIONS (9)
  - BLOOD PRESSURE SYSTOLIC DECREASED [None]
  - ASTHENIA [None]
  - CAROTID ARTERY STENOSIS [None]
  - HYPERTENSION [None]
  - DRY MOUTH [None]
  - MUSCULAR WEAKNESS [None]
  - INAPPROPRIATE ANTIDIURETIC HORMONE SECRETION [None]
  - FALL [None]
  - BLOOD GLUCOSE INCREASED [None]
